FAERS Safety Report 24606586 (Version 1)
Quarter: 2024Q4

REPORT INFORMATION
  Report Type: Spontaneous
  Country: GB (occurrence: GB)
  Receive Date: 20241112
  Receipt Date: 20241112
  Transmission Date: 20250114
  Serious: Yes (Other)
  Sender: ALEXION PHARMACEUTICALS
  Company Number: None

PATIENT
  Age: 41 Year

DRUGS (4)
  1. FULVESTRANT [Suspect]
     Active Substance: FULVESTRANT
     Indication: Adverse drug reaction
     Dosage: 500MG MONTHLY
  2. FULVESTRANT [Suspect]
     Active Substance: FULVESTRANT
     Indication: Breast cancer
     Dosage: 500MG MONTHLY
  3. FULVESTRANT [Suspect]
     Active Substance: FULVESTRANT
     Dosage: 500MG MONTHLY
  4. FULVESTRANT [Suspect]
     Active Substance: FULVESTRANT
     Dosage: 500MG MONTHLY

REACTIONS (1)
  - Anaphylactic reaction [Recovered/Resolved]
